FAERS Safety Report 6480036-X (Version None)
Quarter: 2009Q4

REPORT INFORMATION
  Report Type: 
  Country: None (occurrence: None)
  Receive Date: 20091208
  Receipt Date: 20091204
  Transmission Date: 20100525
  Serious: Yes (Hospitalization)
  Sender: FDA-Public Use
  Company Number: FR-ROCHE-672756

PATIENT
  Age: 15 Year
  Sex: Female

DRUGS (2)
  1. ROCEPHIN [Suspect]
     Indication: DRUG USE FOR UNKNOWN INDICATION
     Route: 065
     Dates: start: 20090821, end: 20090826
  2. FLAGYL [Suspect]
     Indication: DRUG USE FOR UNKNOWN INDICATION
     Route: 065
     Dates: start: 20090821, end: 20090826

REACTIONS (1)
  - PANCYTOPENIA [None]
